FAERS Safety Report 8146682-2 (Version None)
Quarter: 2012Q1

REPORT INFORMATION
  Report Type: 
  Country: None (occurrence: None)
  Receive Date: 20120217
  Receipt Date: 20110531
  Transmission Date: 20120608
  Serious: No
  Sender: FDA-Public Use
  Company Number: US-ABBOTT-11P-163-0729355-00

PATIENT
  Sex: Male
  Weight: 90.8 kg

DRUGS (2)
  1. ASPIRIN [Concomitant]
     Indication: PRODUCT USED FOR UNKNOWN INDICATION
     Dosage: EVERY NIGHT
  2. SIMCOR [Suspect]
     Indication: HIGH DENSITY LIPOPROTEIN DECREASED
     Dosage: 1000/40MG EVERY NIGHT
     Dates: start: 20110501

REACTIONS (4)
  - WEIGHT LOSS POOR [None]
  - SOMNOLENCE [None]
  - FLUSHING [None]
  - PARAESTHESIA [None]
